FAERS Safety Report 10042475 (Version 1)
Quarter: 2014Q1

REPORT INFORMATION
  Report Type: Spontaneous
  Country: AT (occurrence: AT)
  Receive Date: 20140327
  Receipt Date: 20140327
  Transmission Date: 20141002
  Serious: Yes (Hospitalization, Other)
  Sender: FDA-Public Use
  Company Number: AT-TEVA-469408ISR

PATIENT
  Age: 41 Year
  Sex: Female

DRUGS (14)
  1. CITALOPRAM [Suspect]
     Dates: start: 201310, end: 201401
  2. CITALOPRAM [Suspect]
     Dates: start: 201401, end: 20140106
  3. CITALOPRAM [Suspect]
     Dates: start: 20140107, end: 20140120
  4. CITALOPRAM [Suspect]
     Dates: start: 20140121, end: 20140123
  5. TRITTICO [Suspect]
     Dates: start: 201310, end: 20140120
  6. MUCOBENE [Concomitant]
     Dates: start: 20140107, end: 20140130
  7. HALSET [Concomitant]
     Dosage: MAX. 6X/D
     Dates: start: 20140108, end: 20140110
  8. WELLBUTRIN [Concomitant]
     Dates: start: 20140120
  9. CLAVAMOX [Concomitant]
     Dates: start: 20140122, end: 20140129
  10. OMNIFLORA [Concomitant]
     Dosage: 3 DOSAGE FORMS DAILY; IF NEEDED
     Dates: start: 20140122, end: 20140203
  11. PANTOLOC [Concomitant]
     Dates: start: 20140123, end: 20140130
  12. ATARAX [Concomitant]
     Dosage: IF NEEDED
     Dates: start: 20140123
  13. VOLTAREN [Concomitant]
     Dosage: MAX. 3X/D
     Dates: start: 20140123
  14. TANTUM VERDE [Concomitant]
     Dosage: IF NEDDED
     Dates: start: 20140203

REACTIONS (3)
  - Dry mouth [Recovered/Resolved]
  - Glossodynia [Recovered/Resolved]
  - Respiratory tract infection [Unknown]
